FAERS Safety Report 6267616-1 (Version None)
Quarter: 2009Q3

REPORT INFORMATION
  Report Type: 
  Country: None (occurrence: None)
  Receive Date: 20090710
  Receipt Date: 20090626
  Transmission Date: 20100115
  Serious: Yes (Death)
  Sender: FDA-Public Use
  Company Number: 1000007264

PATIENT
  Age: 82 Year
  Sex: Male
  Weight: 67 kg

DRUGS (6)
  1. CITALOPRAM HYDROBROMIDE [Suspect]
     Dosage: 20 MG (20 MG, 1 IN 1 D),ORAL
     Route: 048
  2. RAMIPRIL [Concomitant]
  3. ENTERIC COATED ASA (TABLETS) [Concomitant]
  4. IMOVANE (TABLETS) [Concomitant]
  5. VITALUX (TABLETS) [Concomitant]
  6. ZOCOR [Concomitant]

REACTIONS (1)
  - COMPLETED SUICIDE [None]
